FAERS Safety Report 19204401 (Version 1)
Quarter: 2021Q2

REPORT INFORMATION
  Report Type: Report from Study
  Country: BR (occurrence: BR)
  Receive Date: 20210503
  Receipt Date: 20210503
  Transmission Date: 20210717
  Serious: Yes (Other)
  Sender: FDA-Public Use
  Company Number: NVSC2020BR312539

PATIENT
  Age: 31 Year
  Sex: Female

DRUGS (3)
  1. COSENTYX [Suspect]
     Active Substance: SECUKINUMAB
     Indication: PSORIATIC ARTHROPATHY
     Dosage: 300 MG, QMO (STARTED AROUND 22, 23 OR 24? DEC?2019))
     Route: 065
     Dates: start: 201912
  2. METHOTREXATE. [Suspect]
     Active Substance: METHOTREXATE
     Indication: PRODUCT USED FOR UNKNOWN INDICATION
     Dosage: UNK
     Route: 065
  3. COSENTYX [Suspect]
     Active Substance: SECUKINUMAB
     Dosage: 300 MG, QMO (STARTED AROUND 22, 23 OR 24? DEC?2019), 2 APPLICATIONS
     Route: 065
     Dates: start: 20191223

REACTIONS (19)
  - Erythema [Recovering/Resolving]
  - Pain [Not Recovered/Not Resolved]
  - Psoriasis [Recovering/Resolving]
  - Alopecia [Unknown]
  - Product dose omission issue [Not Recovered/Not Resolved]
  - Pruritus [Unknown]
  - Mental disorder [Unknown]
  - Pain in extremity [Not Recovered/Not Resolved]
  - Arthritis [Unknown]
  - Joint effusion [Unknown]
  - Therapeutic product effect delayed [Unknown]
  - Psoriatic arthropathy [Unknown]
  - Rebound effect [Not Recovered/Not Resolved]
  - Emotional distress [Not Recovered/Not Resolved]
  - Gait inability [Unknown]
  - Arthralgia [Unknown]
  - Skin exfoliation [Unknown]
  - Skin lesion [Recovering/Resolving]
  - Pigmentation disorder [Unknown]

NARRATIVE: CASE EVENT DATE: 201912
